FAERS Safety Report 17565415 (Version 6)
Quarter: 2020Q3

REPORT INFORMATION
  Report Type: Spontaneous
  Country: US (occurrence: US)
  Receive Date: 20200320
  Receipt Date: 20200910
  Transmission Date: 20201102
  Serious: No
  Sender: FDA-Public Use
  Company Number: US-PFIZER INC-2020120850

PATIENT
  Age: 74 Year
  Sex: Female

DRUGS (3)
  1. DETROL [Suspect]
     Active Substance: TOLTERODINE TARTRATE
     Dosage: UNK
  2. DETROL LA [Suspect]
     Active Substance: TOLTERODINE TARTRATE
     Indication: POLLAKIURIA
     Dosage: 2 MG, UNK
  3. DETROL LA [Suspect]
     Active Substance: TOLTERODINE TARTRATE
     Indication: URINARY INCONTINENCE
     Dosage: 4 MG, 1X/DAY [2MG/2 AT NIGHT]
     Dates: start: 1990

REACTIONS (3)
  - Cardiac disorder [Unknown]
  - Feeling cold [Unknown]
  - Product dispensing error [Unknown]
